FAERS Safety Report 6480986-4 (Version None)
Quarter: 2009Q4

REPORT INFORMATION
  Report Type: 
  Country: None (occurrence: None)
  Receive Date: 20091208
  Receipt Date: 20091124
  Transmission Date: 20100525
  Serious: Yes (Other)
  Sender: FDA-Public Use
  Company Number: GB-MYLANLABS-MK-6033792

PATIENT
  Age: 53 Year
  Sex: Female

DRUGS (5)
  1. TAMOXIFEN CITRATE [Suspect]
     Indication: BREAST CANCER
     Route: 048
     Dates: start: 20000101, end: 20061001
  2. CARBAMAZEPINE [Concomitant]
     Indication: GRAND MAL CONVULSION
     Route: 048
  3. PHENYTOIN [Concomitant]
     Indication: GRAND MAL CONVULSION
     Route: 048
  4. LANSOPRAZOLE [Concomitant]
     Indication: DRUG USE FOR UNKNOWN INDICATION
     Route: 048
  5. ALENDRONIC ACID [Concomitant]
     Indication: DRUG USE FOR UNKNOWN INDICATION
     Route: 048

REACTIONS (7)
  - ALTERED STATE OF CONSCIOUSNESS [None]
  - ASTHENIA [None]
  - ATAXIA [None]
  - ATONIC SEIZURES [None]
  - COMPLEX PARTIAL SEIZURES [None]
  - DYSPHAGIA [None]
  - MOBILITY DECREASED [None]
